FAERS Safety Report 7002519-6 (Version None)
Quarter: 2010Q3

REPORT INFORMATION
  Report Type: 
  Country: None (occurrence: None)
  Receive Date: 20100920
  Receipt Date: 20070406
  Transmission Date: 20110219
  Serious: Yes (Other)
  Sender: FDA-Public Use
  Company Number: US-ASTRAZENECA-2006UW05523

PATIENT
  Age: 13755 Day
  Sex: Female
  Weight: 113.4 kg

DRUGS (16)
  1. SEROQUEL [Suspect]
     Indication: SCHIZOPHRENIA
     Dosage: APPROX. 100 MG
     Route: 048
     Dates: start: 20030101, end: 20050401
  2. SEROQUEL [Suspect]
     Indication: HALLUCINATION, AUDITORY
     Dosage: APPROX. 100 MG
     Route: 048
     Dates: start: 20030101, end: 20050401
  3. SEROQUEL [Suspect]
     Indication: INSOMNIA
     Dosage: APPROX. 100 MG
     Route: 048
     Dates: start: 20030101, end: 20050401
  4. SEROQUEL [Suspect]
     Dosage: 100 - 450 MG
     Route: 048
     Dates: start: 20040405, end: 20050413
  5. SEROQUEL [Suspect]
     Dosage: 100 - 450 MG
     Route: 048
     Dates: start: 20040405, end: 20050413
  6. SEROQUEL [Suspect]
     Dosage: 100 - 450 MG
     Route: 048
     Dates: start: 20040405, end: 20050413
  7. ABILIFY [Concomitant]
     Dates: start: 20050401
  8. ZOLOFT [Concomitant]
     Indication: HALLUCINATION, AUDITORY
     Dosage: 50-200 MG
     Dates: start: 20011023
  9. VALIUM [Concomitant]
     Dosage: 5-10 MG
     Dates: start: 20040405
  10. GLYBURIDE [Concomitant]
     Dosage: 2.5-5 MG
     Dates: start: 20050310
  11. XANAX [Concomitant]
     Dosage: 0.5-10 MG
     Dates: start: 20011023
  12. GLUCOVANCE [Concomitant]
     Dates: start: 20050310
  13. VICODIN [Concomitant]
     Indication: PAIN
     Dosage: 5/500 MG 1 TABLET THREE TIMES A DAY
     Dates: start: 20031209
  14. PREDNISONE [Concomitant]
     Dosage: 20 MG TAKE THREE TABLETS DAILY X2 DAYS THEN 2 TABLETS DAILY
     Dates: start: 20040401
  15. PAMELOR [Concomitant]
     Indication: HALLUCINATION, AUDITORY
     Dates: start: 20041122
  16. PROTONIX [Concomitant]
     Dates: start: 20050324

REACTIONS (3)
  - DIABETES MELLITUS [None]
  - LETHARGY [None]
  - TYPE 2 DIABETES MELLITUS [None]
